FAERS Safety Report 11279878 (Version 2)
Quarter: 2015Q3

REPORT INFORMATION
  Report Type: Report from Study
  Country: US (occurrence: US)
  Receive Date: 20150717
  Receipt Date: 20150727
  Transmission Date: 20151125
  Serious: Yes (Hospitalization, Other)
  Sender: FDA-Public Use
  Company Number: US-ALEXION PHARMACEUTICALS INC.-A201502600

PATIENT

DRUGS (1)
  1. SOLIRIS [Suspect]
     Active Substance: ECULIZUMAB
     Indication: HAEMOLYTIC URAEMIC SYNDROME
     Dosage: 1500 MG, Q2W
     Route: 042
     Dates: start: 2013

REACTIONS (4)
  - Post procedural complication [Unknown]
  - Abdominal pain upper [Unknown]
  - Ascites [Not Recovered/Not Resolved]
  - Peritoneal haemorrhage [Unknown]

NARRATIVE: CASE EVENT DATE: 201507
